FAERS Safety Report 6336521-4 (Version None)
Quarter: 2009Q3

REPORT INFORMATION
  Report Type: 
  Country: None (occurrence: None)
  Receive Date: 20090901
  Receipt Date: 20090824
  Transmission Date: 20100115
  Serious: Yes (Death, Other)
  Sender: FDA-Public Use
  Company Number: US-ROCHE-650593

PATIENT
  Age: 76 Year
  Sex: Female
  Weight: 91 kg

DRUGS (11)
  1. BONIVA [Suspect]
     Indication: DRUG USE FOR UNKNOWN INDICATION
     Route: 065
     Dates: end: 20090717
  2. BONIVA [Suspect]
     Dosage: DRUG NAME REPORTED AS BONIVA (IBANDRONATE SODIUM).
     Route: 065
  3. GLIBENCLAMIDE [Suspect]
     Indication: DRUG USE FOR UNKNOWN INDICATION
     Dosage: GLIBENCLAMIDE PRESTAB
     Route: 065
  4. METFORMIN HYDROCHLORIDE [Suspect]
     Indication: DRUG USE FOR UNKNOWN INDICATION
     Route: 065
  5. ARIMIDEX [Suspect]
     Indication: BREAST CANCER
     Dosage: DRUG REPORTED AS ARIMIDEX ^ASTRAZENECA^
     Route: 048
     Dates: start: 20060118
  6. NORVASC [Suspect]
     Indication: DRUG USE FOR UNKNOWN INDICATION
     Dosage: FILM-COATED TABLET
     Route: 065
  7. HYDROCHLOROTHIAZIDE [Suspect]
     Indication: DRUG USE FOR UNKNOWN INDICATION
     Route: 065
  8. ASPIRIN [Suspect]
     Indication: DRUG USE FOR UNKNOWN INDICATION
     Route: 065
  9. COZAAR [Suspect]
     Indication: DRUG USE FOR UNKNOWN INDICATION
     Route: 065
  10. SYNTHROID [Suspect]
     Indication: DRUG USE FOR UNKNOWN INDICATION
     Route: 065
  11. CALCIUM/VITAMIN D [Suspect]
     Indication: DRUG USE FOR UNKNOWN INDICATION
     Dosage: DRUG: CALCIUM AND VITAMIN D (CALCIUM PHOSPHATE, CALCIUM SODIUM LACTATE, ERGOCALCIFEROL).
     Route: 065

REACTIONS (2)
  - DEATH [None]
  - MYOCARDIAL INFARCTION [None]
